FAERS Safety Report 5796547-6 (Version None)
Quarter: 2008Q2

REPORT INFORMATION
  Report Type: 
  Country: None (occurrence: None)
  Receive Date: 20080630
  Receipt Date: 20080630
  Transmission Date: 20081010
  Serious: Yes (Other)
  Sender: FDA-Public Use
  Company Number: None

PATIENT
  Age: 83 Year
  Sex: Female
  Weight: 56.246 kg

DRUGS (1)
  1. XANAX [Suspect]
     Indication: ANXIETY
     Dosage: .25 MG 2X PER DAY PO
     Route: 048
     Dates: start: 20071220, end: 20080129

REACTIONS (7)
  - ABNORMAL BEHAVIOUR [None]
  - AGGRESSION [None]
  - DELIRIUM [None]
  - DISINHIBITION [None]
  - DISTURBANCE IN SOCIAL BEHAVIOUR [None]
  - ORAL INTAKE REDUCED [None]
  - PARANOIA [None]
